FAERS Safety Report 7976406-0 (Version None)
Quarter: 2011Q4

REPORT INFORMATION
  Report Type: 
  Country: None (occurrence: None)
  Receive Date: 20111213
  Receipt Date: 20111020
  Transmission Date: 20120403
  Serious: No
  Sender: FDA-Public Use
  Company Number: US-AMGEN-USASP2011054284

PATIENT
  Sex: Female

DRUGS (4)
  1. METHOTREXATE [Concomitant]
     Dosage: 1 MG, UNK
  2. ENBREL [Suspect]
     Indication: RHEUMATOID ARTHRITIS
     Dosage: 50 MG, QWK
     Dates: start: 20110907
  3. ENBREL [Suspect]
     Indication: PSORIATIC ARTHROPATHY
  4. ENBREL [Suspect]
     Indication: FIBROMYALGIA

REACTIONS (1)
  - PAIN IN EXTREMITY [None]
